FAERS Safety Report 6648598-7 (Version None)
Quarter: 2010Q1

REPORT INFORMATION
  Report Type: 
  Country: None (occurrence: None)
  Receive Date: 20100319
  Receipt Date: 20100308
  Transmission Date: 20100710
  Serious: Yes (Other)
  Sender: FDA-Public Use
  Company Number: OMPQ-NO-0909S-0822

PATIENT
  Age: 71 Year
  Sex: Male

DRUGS (10)
  1. OMNIPAQUE 350 [Suspect]
     Indication: ACUTE MYOCARDIAL INFARCTION
     Dosage: 170 ML, SINGLE DOSE, I.A.
     Route: 014
     Dates: start: 20090115, end: 20090115
  2. CEFAZOLIN SODIUM (CEFAMEZIN) [Concomitant]
  3. ACETYLSALICYLIC ACID, ALUMINIUM GLYCINATE (BUFFERIN) [Concomitant]
  4. PLAVIX [Concomitant]
  5. LANSOPRAZOLE [Concomitant]
  6. ROSUVASTATIN CALCIUM (CRESTOR) [Concomitant]
  7. PREINDOPRIL (COVERSYL) [Concomitant]
  8. BISOPROLOL FUMARATE (MAINTATE) [Concomitant]
  9. GLIMERPIRIDE (AMARYL) [Concomitant]
  10. VOGLIBOSE (BASEN) [Concomitant]

REACTIONS (5)
  - DERMATITIS EXFOLIATIVE [None]
  - LICHENIFICATION [None]
  - PIGMENTATION DISORDER [None]
  - PRURITUS [None]
  - TOXIC SKIN ERUPTION [None]
